FAERS Safety Report 7232358-2 (Version None)
Quarter: 2010Q4

REPORT INFORMATION
  Report Type: 
  Country: None (occurrence: None)
  Receive Date: 20101029
  Receipt Date: 20091118
  Transmission Date: 20110411
  Serious: Yes (Hospitalization)
  Sender: FDA-Public Use
  Company Number: 2009-4754

PATIENT
  Age: 15 Year
  Sex: Female
  Weight: 42.5 kg

DRUGS (3)
  1. INCRELEX [Suspect]
     Indication: BODY HEIGHT BELOW NORMAL
     Dosage: 10.4 MG (5.2 MG, 2 IN 1 D), SUBCUTANEOUS
     Route: 058
     Dates: start: 20090814, end: 20090922
  2. INCRELEX [Suspect]
     Indication: GROWTH HORMONE DEFICIENCY
     Dosage: 10.4 MG (5.2 MG, 2 IN 1 D), SUBCUTANEOUS
     Route: 058
     Dates: start: 20090814, end: 20090922
  3. PROZAC [Concomitant]

REACTIONS (4)
  - BENIGN INTRACRANIAL HYPERTENSION [None]
  - DIPLOPIA [None]
  - GAZE PALSY [None]
  - VISION BLURRED [None]
